FAERS Safety Report 9984124 (Version 2)
Quarter: 2014Q1

REPORT INFORMATION
  Report Type: Report from Study
  Country: US (occurrence: US)
  Receive Date: 20140307
  Receipt Date: 20140307
  Transmission Date: 20141002
  Serious: No
  Sender: FDA-Public Use
  Company Number: US-ABBVIE-13P-163-1166260-00

PATIENT
  Age: 32 Year
  Sex: Female

DRUGS (8)
  1. HUMIRA [Suspect]
     Indication: PSORIASIS
     Dates: start: 20131023, end: 20131023
  2. HUMIRA [Suspect]
     Dates: start: 20131030
  3. HUMIRA [Suspect]
     Indication: PRODUCT USED FOR UNKNOWN INDICATION
     Dates: start: 2013, end: 20131211
  4. VITAMIN B12 [Concomitant]
     Indication: VITAMIN B12 DEFICIENCY
  5. ADDERALL [Concomitant]
     Indication: ATTENTION DEFICIT/HYPERACTIVITY DISORDER
  6. LOESTRIN FE [Concomitant]
     Indication: CONTRACEPTION
  7. KLONOPIN [Concomitant]
     Indication: ANXIETY
  8. PROBIOTICS [Concomitant]
     Indication: GASTROINTESTINAL DISORDER

REACTIONS (40)
  - Pain of skin [Recovering/Resolving]
  - Dizziness [Not Recovered/Not Resolved]
  - Palpitations [Not Recovered/Not Resolved]
  - Memory impairment [Not Recovered/Not Resolved]
  - Nasal dryness [Not Recovered/Not Resolved]
  - Ear discomfort [Not Recovered/Not Resolved]
  - Lymphadenopathy [Not Recovered/Not Resolved]
  - Throat irritation [Not Recovered/Not Resolved]
  - Anxiety [Not Recovered/Not Resolved]
  - Migraine [Not Recovered/Not Resolved]
  - Injection site urticaria [Not Recovered/Not Resolved]
  - Injection site discolouration [Recovering/Resolving]
  - Injection site induration [Recovering/Resolving]
  - Injection site inflammation [Not Recovered/Not Resolved]
  - Injection site pain [Not Recovered/Not Resolved]
  - Injection site urticaria [Recovering/Resolving]
  - Injection site erythema [Recovering/Resolving]
  - Injection site pruritus [Recovering/Resolving]
  - Injection site erythema [Recovering/Resolving]
  - Injection site urticaria [Recovering/Resolving]
  - Injection site pain [Not Recovered/Not Resolved]
  - Injection site erythema [Recovering/Resolving]
  - Urticaria [Not Recovered/Not Resolved]
  - Pyrexia [Not Recovered/Not Resolved]
  - Erythema [Not Recovered/Not Resolved]
  - Nausea [Not Recovered/Not Resolved]
  - Back pain [Not Recovered/Not Resolved]
  - Urticaria [Not Recovered/Not Resolved]
  - Psoriasis [Recovering/Resolving]
  - Injection site urticaria [Recovering/Resolving]
  - Device allergy [Not Recovered/Not Resolved]
  - Headache [Not Recovered/Not Resolved]
  - Dizziness [Unknown]
  - Injection site erythema [Not Recovered/Not Resolved]
  - Injection site swelling [Not Recovered/Not Resolved]
  - Memory impairment [Not Recovered/Not Resolved]
  - Psoriasis [Not Recovered/Not Resolved]
  - Stress at work [Not Recovered/Not Resolved]
  - Injection site reaction [Not Recovered/Not Resolved]
  - Malaise [Not Recovered/Not Resolved]
